FAERS Safety Report 20824486 (Version 1)
Quarter: 2022Q2

REPORT INFORMATION
  Report Type: Spontaneous
  Country: US (occurrence: US)
  Receive Date: 20220513
  Receipt Date: 20220513
  Transmission Date: 20220721
  Serious: No
  Sender: FDA-Public Use
  Company Number: US-LUPIN PHARMACEUTICALS INC.-2022-06818

PATIENT
  Age: 15 Year
  Sex: Male

DRUGS (3)
  1. METFORMIN [Suspect]
     Active Substance: METFORMIN HYDROCHLORIDE
     Indication: Prader-Willi syndrome
     Dosage: 1000 MG, BID
     Route: 065
  2. TOPIRAMATE [Suspect]
     Active Substance: TOPIRAMATE
     Indication: Prader-Willi syndrome
     Dosage: 100 MG, QD (NIGHTLY)
     Route: 065
  3. DEPO-TESTOSTERONE [Concomitant]
     Active Substance: TESTOSTERONE CYPIONATE
     Indication: Product used for unknown indication
     Dosage: UNK
     Route: 065

REACTIONS (1)
  - Off label use [Unknown]
